FAERS Safety Report 23343978 (Version 1)
Quarter: 2023Q4

REPORT INFORMATION
  Report Type: Other
  Country: CH (occurrence: CH)
  Receive Date: 20231227
  Receipt Date: 20231227
  Transmission Date: 20240110
  Serious: Yes (Hospitalization)
  Sender: FDA-Public Use
  Company Number: None

PATIENT

DRUGS (11)
  1. RUXOLITINIB [Suspect]
     Active Substance: RUXOLITINIB
     Indication: Polycythaemia vera
     Dosage: 40 MG, Q12H
     Route: 048
     Dates: start: 2019
  2. RUXOLITINIB [Suspect]
     Active Substance: RUXOLITINIB
     Dosage: 15 MG, QD
     Route: 048
     Dates: start: 202306
  3. RUXOLITINIB [Suspect]
     Active Substance: RUXOLITINIB
     Dosage: 40 MG, Q12H
     Route: 048
     Dates: start: 20231113
  4. ALDACTONE [Suspect]
     Active Substance: SPIRONOLACTONE
     Indication: Gastrointestinal haemorrhage
     Dosage: 12.5 MG, Q12H
     Route: 048
  5. NOVALGIN (METAMIZOLE SODIUM) [Suspect]
     Active Substance: METAMIZOLE SODIUM
     Indication: Product used for unknown indication
     Dosage: 1000 MG, 4 SEPARATED DOSES
     Route: 048
  6. ENOXAPARIN SODIUM [Suspect]
     Active Substance: ENOXAPARIN SODIUM
     Indication: Product used for unknown indication
     Dosage: 40 MG, Q24H
     Route: 058
     Dates: start: 20231122, end: 20231126
  7. ASPIRIN [Suspect]
     Active Substance: ASPIRIN
     Indication: Gastrointestinal haemorrhage
     Dosage: 100 MG, Q24H
     Route: 048
  8. ATORVASTATIN [Concomitant]
     Active Substance: ATORVASTATIN
     Indication: Product used for unknown indication
     Dosage: 40 MG, Q24H
     Route: 048
  9. DAFALGAN [Concomitant]
     Active Substance: ACETAMINOPHEN
     Indication: Product used for unknown indication
     Dosage: 1000 MG, Q6H, 4 SEPARATED DOSES
     Route: 048
  10. DAPAGLIFLOZIN [Concomitant]
     Active Substance: DAPAGLIFLOZIN
     Indication: Product used for unknown indication
     Dosage: 10 MG, Q24H
     Route: 048
  11. METOPROLOL SUCCINATE [Concomitant]
     Active Substance: METOPROLOL SUCCINATE
     Indication: Product used for unknown indication
     Dosage: 50 MG, Q24H
     Route: 048

REACTIONS (1)
  - Gastrointestinal haemorrhage [Recovering/Resolving]

NARRATIVE: CASE EVENT DATE: 20231126
